FAERS Safety Report 7388245-2 (Version None)
Quarter: 2011Q2

REPORT INFORMATION
  Report Type: 
  Country: None (occurrence: None)
  Receive Date: 20110401
  Receipt Date: 20110215
  Transmission Date: 20111010
  Serious: Yes (Other)
  Sender: FDA-Public Use
  Company Number: US-AMGEN-USASP2010012358

PATIENT
  Age: 68 Year
  Sex: Female

DRUGS (5)
  1. PREMARIN [Concomitant]
  2. CLARINEX                           /01202601/ [Concomitant]
  3. CALCIUM [Concomitant]
  4. NIOXIN [Concomitant]
  5. PROLIA [Suspect]
     Indication: OSTEOPOROSIS POSTMENOPAUSAL
     Dosage: 60 MG, Q6MO
     Dates: start: 20101228

REACTIONS (16)
  - INFECTION [None]
  - PYREXIA [None]
  - PSORIASIS [None]
  - DIARRHOEA [None]
  - PRODUCTIVE COUGH [None]
  - WEIGHT DECREASED [None]
  - BLISTER [None]
  - COUGH [None]
  - BRONCHITIS [None]
  - PALPITATIONS [None]
  - BLOOD CHOLESTEROL INCREASED [None]
  - VISUAL IMPAIRMENT [None]
  - CHILLS [None]
  - NERVOUSNESS [None]
  - ASTHENIA [None]
  - SECRETION DISCHARGE [None]
